FAERS Safety Report 11464409 (Version 1)
Quarter: 2015Q3

REPORT INFORMATION
  Report Type: Spontaneous
  Country: US (occurrence: US)
  Receive Date: 20150831
  Receipt Date: 20150831
  Transmission Date: 20151125
  Serious: No
  Sender: FDA-Public Use
  Company Number: US-ELI_LILLY_AND_COMPANY-US201107000750

PATIENT
  Age: 55 Year
  Sex: Male

DRUGS (18)
  1. CYMBALTA [Suspect]
     Active Substance: DULOXETINE HYDROCHLORIDE
     Indication: DEPRESSION
     Dosage: 0.75 DF, QD
     Dates: start: 201007
  2. VALACICLOVIR [Concomitant]
     Active Substance: VALACYCLOVIR HYDROCHLORIDE
  3. HYDROCODONE [Concomitant]
     Active Substance: HYDROCODONE
  4. VIREAD [Concomitant]
     Active Substance: TENOFOVIR DISOPROXIL FUMARATE
     Dosage: UNK
     Dates: start: 20110602, end: 20110606
  5. REYATAZ [Concomitant]
     Active Substance: ATAZANAVIR SULFATE
     Dosage: 400 MG, UNK
  6. ISENTRESS [Concomitant]
     Active Substance: RALTEGRAVIR POTASSIUM
     Dosage: 400 MG, BID
  7. ALERTEC [Concomitant]
     Active Substance: MODAFINIL
  8. FUZEON [Concomitant]
     Active Substance: ENFUVIRTIDE
  9. DOXAZOSIN [Concomitant]
     Active Substance: DOXAZOSIN\DOXAZOSIN MESYLATE
  10. VITAMIN D3 [Concomitant]
     Active Substance: CHOLECALCIFEROL
     Dosage: UNK, QD
  11. FISH OIL [Concomitant]
     Active Substance: FISH OIL
  12. EPIVIR [Concomitant]
     Active Substance: LAMIVUDINE
     Dosage: 300 MG, QD
  13. DIAZEPAM. [Concomitant]
     Active Substance: DIAZEPAM
     Dosage: UNK, BID
  14. ONDANSETRON [Concomitant]
     Active Substance: ONDANSETRON
     Dosage: UNK, BID
  15. LOPERAMIDE [Concomitant]
     Active Substance: LOPERAMIDE
  16. CALCIUM [Concomitant]
     Active Substance: CALCIUM
     Dosage: UNK, BID
  17. CYMBALTA [Suspect]
     Active Substance: DULOXETINE HYDROCHLORIDE
     Dosage: .5 DF, QD
     Dates: start: 201105
  18. ALLERGY MEDICATION [Concomitant]
     Active Substance: DIPHENHYDRAMINE HYDROCHLORIDE

REACTIONS (4)
  - Visual impairment [Not Recovered/Not Resolved]
  - Mental disorder [Unknown]
  - Depression [Recovered/Resolved]
  - Wrong technique in product usage process [Not Recovered/Not Resolved]

NARRATIVE: CASE EVENT DATE: 201007
